FAERS Safety Report 16896582 (Version 2)
Quarter: 2019Q4

REPORT INFORMATION
  Report Type: Spontaneous
  Country: US (occurrence: US)
  Receive Date: 20191008
  Receipt Date: 20191017
  Transmission Date: 20200122
  Serious: Yes (Other)
  Sender: FDA-Public Use
  Company Number: US-PFIZER INC-2019427859

PATIENT
  Age: 65 Year
  Sex: Female
  Weight: 71.67 kg

DRUGS (3)
  1. PREMARIN [Suspect]
     Active Substance: ESTROGENS, CONJUGATED
     Indication: HYSTERECTOMY
     Dosage: UNK UNK, WEEKLY
     Route: 067
     Dates: start: 201806
  2. PREMARIN [Suspect]
     Active Substance: ESTROGENS, CONJUGATED
     Indication: OESTROGEN REPLACEMENT THERAPY
     Dosage: UNK [0.625 MG INSERT VAGINALLY 2-3 TIMES A WEEK]
     Route: 067
     Dates: start: 201806
  3. PREMARIN [Suspect]
     Active Substance: ESTROGENS, CONJUGATED
     Dosage: 0.5 G, 2X/WEEK, (INSERT 0.5GM TWICE WEEKLY AT BEDTIME)
     Route: 067

REACTIONS (6)
  - Off label use [Unknown]
  - Contraindicated product prescribed [Unknown]
  - Malabsorption [Unknown]
  - Vaginal discharge [Unknown]
  - Vaginal disorder [Unknown]
  - Product use in unapproved indication [Unknown]

NARRATIVE: CASE EVENT DATE: 201806
